FAERS Safety Report 12711006 (Version 2)
Quarter: 2016Q4

REPORT INFORMATION
  Report Type: Spontaneous
  Country: US (occurrence: US)
  Receive Date: 20160902
  Receipt Date: 20161207
  Transmission Date: 20170207
  Serious: Yes (Hospitalization)
  Sender: FDA-Public Use
  Company Number: US-TEVA-689711USA

PATIENT
  Age: 6 Decade
  Sex: Female

DRUGS (3)
  1. RITUXIMAB [Concomitant]
     Active Substance: RITUXIMAB
  2. ALLOPURINOL. [Concomitant]
     Active Substance: ALLOPURINOL
  3. TREANDA [Suspect]
     Active Substance: BENDAMUSTINE HYDROCHLORIDE
     Indication: CHRONIC LYMPHOCYTIC LEUKAEMIA
     Route: 065
     Dates: start: 20160602

REACTIONS (6)
  - Nausea [Unknown]
  - Chills [Unknown]
  - Pyrexia [Unknown]
  - Asthma [Unknown]
  - Vomiting [Unknown]
  - Cough [Unknown]
